FAERS Safety Report 9646130 (Version 1)
Quarter: 2013Q4

REPORT INFORMATION
  Report Type: Spontaneous
  Country: GB (occurrence: None)
  Receive Date: 20131024
  Receipt Date: 20131024
  Transmission Date: 20140711
  Serious: Yes (Other)
  Sender: FDA-Public Use
  Company Number: 2013-003316

PATIENT
  Age: 53 Year
  Sex: Female
  Weight: 75 kg

DRUGS (4)
  1. DORYX [Suspect]
     Route: 048
     Dates: start: 20130918, end: 20130924
  2. FOSTAIR ( BECLOMETASONE DIPROPIONATE, FORMOTEROL FUMERATE) [Concomitant]
  3. VENTOLIN ( SALBUTAMOL) [Concomitant]
  4. RANITIDINE ( RANITIDINE) [Concomitant]

REACTIONS (2)
  - Oral candidiasis [None]
  - Cheilitis [None]
